FAERS Safety Report 6932592-2 (Version None)
Quarter: 2010Q3

REPORT INFORMATION
  Report Type: 
  Country: None (occurrence: None)
  Receive Date: 20100819
  Receipt Date: 20100818
  Transmission Date: 20110219
  Serious: Yes (Death, Other)
  Sender: FDA-Public Use
  Company Number: SE-BRISTOL-MYERS SQUIBB COMPANY-15233802

PATIENT
  Age: 55 Year
  Sex: Female

DRUGS (3)
  1. DASATINIB [Suspect]
     Indication: CHRONIC MYELOID LEUKAEMIA
     Dosage: INITIATED IN FEBRUARY
  2. HYDROXYUREA [Suspect]
  3. IMATINIB MESYLATE [Suspect]
     Dosage: INCREASED UPTO 800 MG/DAY
     Dates: start: 20040901

REACTIONS (3)
  - ACUTE MYELOID LEUKAEMIA [None]
  - CYTOGENETIC ABNORMALITY [None]
  - FUNGAL SEPSIS [None]
